FAERS Safety Report 6727652-5 (Version None)
Quarter: 2010Q2

REPORT INFORMATION
  Report Type: 
  Country: None (occurrence: None)
  Receive Date: 20100517
  Receipt Date: 20100507
  Transmission Date: 20101027
  Serious: Yes (Life-Threatening, Hospitalization, Other)
  Sender: FDA-Public Use
  Company Number: FR-ABBOTT-10P-056-0643038-00

PATIENT
  Age: 30 Year
  Sex: Female

DRUGS (3)
  1. HUMIRA [Suspect]
     Indication: CROHN'S DISEASE
     Dosage: LOADING DOSE OF 160 MG
     Dates: start: 20100301, end: 20100301
  2. HUMIRA [Suspect]
     Dosage: 80 MG
  3. HUMIRA [Suspect]
     Dates: end: 20100501

REACTIONS (3)
  - CARDIAC TAMPONADE [None]
  - PANCYTOPENIA [None]
  - PERICARDITIS [None]
